FAERS Safety Report 12583064 (Version 2)
Quarter: 2018Q2

REPORT INFORMATION
  Report Type: Spontaneous
  Country: US (occurrence: US)
  Receive Date: 20160722
  Receipt Date: 20180403
  Transmission Date: 20180711
  Serious: Yes (Hospitalization)
  Sender: FDA-Public Use
  Company Number: US-UNITED THERAPEUTICS-UNT-2016-011385

PATIENT
  Sex: Female

DRUGS (1)
  1. ORENITRAM [Suspect]
     Active Substance: TREPROSTINIL
     Indication: PULMONARY ARTERIAL HYPERTENSION
     Dosage: 5 MG, BID
     Route: 048
     Dates: start: 20160622

REACTIONS (2)
  - Oedema [Unknown]
  - Pneumonia [Unknown]

NARRATIVE: CASE EVENT DATE: 20160710
